FAERS Safety Report 11344116 (Version 1)
Quarter: 2015Q3

REPORT INFORMATION
  Report Type: Spontaneous
  Country: US (occurrence: US)
  Receive Date: 20150806
  Receipt Date: 20150806
  Transmission Date: 20151125
  Serious: Yes (Other)
  Sender: FDA-Public Use
  Company Number: US-JNJFOC-20150722544

PATIENT
  Age: 38 Year
  Sex: Female
  Weight: 95.26 kg

DRUGS (2)
  1. IMODIUM MULTI-SYMPTOM RELIEF [Suspect]
     Active Substance: DIMETHICONE\LOPERAMIDE HYDROCHLORIDE
     Indication: IRRITABLE BOWEL SYNDROME
     Dosage: EVERY 3-4 DAYS AS NECESSARY
     Route: 048
  2. IMODIUM MULTI-SYMPTOM RELIEF [Suspect]
     Active Substance: DIMETHICONE\LOPERAMIDE HYDROCHLORIDE
     Indication: IRRITABLE BOWEL SYNDROME
     Dosage: EVERY 3-4 DAYS AS NECESSARY
     Route: 048
     Dates: end: 20150729

REACTIONS (5)
  - Choking [Recovering/Resolving]
  - Product quality issue [None]
  - Product difficult to swallow [Recovering/Resolving]
  - Retching [Recovering/Resolving]
  - Dysgeusia [Unknown]
